FAERS Safety Report 10228368 (Version 1)
Quarter: 2014Q2

REPORT INFORMATION
  Report Type: Spontaneous
  Country: US (occurrence: None)
  Receive Date: 20140609
  Receipt Date: 20140609
  Transmission Date: 20141212
  Serious: No
  Sender: FDA-Public Use
  Company Number: None

PATIENT
  Age: 20 Year
  Sex: Female
  Weight: 56.7 kg

DRUGS (1)
  1. REGLAN [Suspect]
     Indication: GASTROOESOPHAGEAL REFLUX DISEASE
     Dosage: 1 FOUR TIMES DAILY, TAKEN BY MOUTH?
     Route: 048
     Dates: start: 20140601, end: 20140605

REACTIONS (6)
  - Fatigue [None]
  - Depression [None]
  - Aphagia [None]
  - Somnolence [None]
  - Feeling abnormal [None]
  - Product quality issue [None]
